FAERS Safety Report 7804683-5 (Version None)
Quarter: 2011Q4

REPORT INFORMATION
  Report Type: 
  Country: None (occurrence: None)
  Receive Date: 20111010
  Receipt Date: 20111004
  Transmission Date: 20120403
  Serious: Yes (Death, Hospitalization, Other)
  Sender: FDA-Public Use
  Company Number: IE-ELI_LILLY_AND_COMPANY-IE201110001186

PATIENT
  Sex: Female

DRUGS (2)
  1. ALIMTA [Suspect]
     Dosage: UNK
     Dates: start: 20110407
  2. CARBOPLATIN [Concomitant]

REACTIONS (2)
  - DEATH [None]
  - NEUTROPENIC SEPSIS [None]
